FAERS Safety Report 17686799 (Version 2)
Quarter: 2020Q2

REPORT INFORMATION
  Report Type: Report from Study
  Country: None (occurrence: US)
  Receive Date: 20200421
  Receipt Date: 20200524
  Transmission Date: 20200714
  Serious: Yes (Hospitalization, Other)
  Sender: FDA-Public Use
  Company Number: US-ABBVIE-19K-163-2925193-00

PATIENT
  Age: 56 Year
  Sex: Female
  Weight: 86.26 kg

DRUGS (13)
  1. LYRICA [Concomitant]
     Active Substance: PREGABALIN
     Indication: FIBROMYALGIA
  2. CRESTOR [Concomitant]
     Active Substance: ROSUVASTATIN CALCIUM
     Indication: BLOOD CHOLESTEROL
  3. SPIRONOLACTONE. [Concomitant]
     Active Substance: SPIRONOLACTONE
     Indication: BLOOD PRESSURE MEASUREMENT
  4. HUMIRA [Suspect]
     Active Substance: ADALIMUMAB
     Indication: RHEUMATOID ARTHRITIS
     Route: 058
     Dates: start: 20170727, end: 20190822
  5. FOLIC ACID. [Concomitant]
     Active Substance: FOLIC ACID
     Indication: PRODUCT USED FOR UNKNOWN INDICATION
  6. PLAQUENIL [Concomitant]
     Active Substance: HYDROXYCHLOROQUINE SULFATE
     Indication: RHEUMATOID ARTHRITIS
  7. HUMIRA [Suspect]
     Active Substance: ADALIMUMAB
     Route: 058
     Dates: start: 20191018, end: 2020
  8. MTX [Concomitant]
     Active Substance: METHOTREXATE SODIUM
     Indication: RHEUMATOID ARTHRITIS
  9. TELMISARTAN. [Concomitant]
     Active Substance: TELMISARTAN
     Indication: BLOOD PRESSURE MEASUREMENT
  10. ZOLOFT [Concomitant]
     Active Substance: SERTRALINE HYDROCHLORIDE
     Indication: DEPRESSION
  11. AMITRIPTYLINE [Concomitant]
     Active Substance: AMITRIPTYLINE
     Indication: PRODUCT USED FOR UNKNOWN INDICATION
  12. NORVASC [Concomitant]
     Active Substance: AMLODIPINE BESYLATE
     Indication: BLOOD PRESSURE MEASUREMENT
  13. MECLOFENAMATE SODIUM. [Concomitant]
     Active Substance: MECLOFENAMATE SODIUM
     Indication: ARTHRITIS

REACTIONS (13)
  - Asthenia [Unknown]
  - White blood cell count decreased [Unknown]
  - Cyst rupture [Recovered/Resolved]
  - Fatigue [Not Recovered/Not Resolved]
  - Infected cyst [Unknown]
  - Pain in extremity [Recovering/Resolving]
  - Finger deformity [Not Recovered/Not Resolved]
  - Fatigue [Recovered/Resolved]
  - Injection site pain [Not Recovered/Not Resolved]
  - Arthralgia [Unknown]
  - Arthritis bacterial [Recovered/Resolved]
  - Red blood cell sedimentation rate increased [Unknown]
  - Synovial cyst [Unknown]

NARRATIVE: CASE EVENT DATE: 2017
